FAERS Safety Report 8632346 (Version 2)
Quarter: 2014Q1

REPORT INFORMATION
  Report Type: Spontaneous
  Country: US (occurrence: US)
  Receive Date: 20120625
  Receipt Date: 20140221
  Transmission Date: 20141002
  Serious: Yes (Disabling, Congenital Anomaly, Other)
  Sender: FDA-Public Use
  Company Number: US-PFIZER INC-2012148589

PATIENT
  Sex: Male

DRUGS (6)
  1. ZOLOFT [Suspect]
     Indication: DEPRESSION
     Dosage: UNK
     Route: 064
     Dates: start: 2000, end: 2001
  2. ZOLOFT [Suspect]
     Indication: ANXIETY
     Dosage: 50 MG, DAILY
     Route: 064
     Dates: start: 20010621, end: 20020813
  3. ZOLOFT [Suspect]
     Dosage: 100 MG, DAILY
     Route: 064
     Dates: start: 20020816, end: 20030723
  4. TYLENOL [Concomitant]
     Indication: PYREXIA
     Dosage: UNK, AS NEEDED
     Route: 064
     Dates: start: 1999, end: 2004
  5. PRENATAL VITAMINS [Concomitant]
     Dosage: UNK, DAILY
     Route: 064
     Dates: start: 2003, end: 2004
  6. PROTONIX [Concomitant]
     Indication: GASTROOESOPHAGEAL REFLUX DISEASE
     Dosage: 40 MG, UNK
     Route: 064
     Dates: start: 20030523, end: 20030623

REACTIONS (6)
  - Maternal exposure timing unspecified [Unknown]
  - Transposition of the great vessels [Unknown]
  - Patent ductus arteriosus [Unknown]
  - Atrial septal defect [Unknown]
  - Congenital anomaly [Unknown]
  - Premature baby [Unknown]
